FAERS Safety Report 6643462-1 (Version None)
Quarter: 2010Q1

REPORT INFORMATION
  Report Type: 
  Country: None (occurrence: None)
  Receive Date: 20100319
  Receipt Date: 20100312
  Transmission Date: 20100710
  Serious: Yes (Hospitalization)
  Sender: FDA-Public Use
  Company Number: US-GILEAD-2010-0027240

PATIENT
  Sex: Female

DRUGS (12)
  1. LETAIRIS [Suspect]
     Indication: PULMONARY ARTERIAL HYPERTENSION
     Route: 048
     Dates: start: 20090526
  2. METOPROLOL TARTRATE [Concomitant]
  3. AMLODIPINE [Concomitant]
  4. FUROSEMIDE [Concomitant]
  5. WARFARIN SODIUM [Concomitant]
  6. ASPIRIN [Concomitant]
  7. LEVOTHYROXINE SODIUM [Concomitant]
  8. POT CL [Concomitant]
  9. FAMOTIDINE [Concomitant]
  10. DOCUSATE [Concomitant]
  11. MULTI-VITAMIN [Concomitant]
  12. OXYGEN [Concomitant]

REACTIONS (2)
  - APHAGIA [None]
  - CEREBROVASCULAR ACCIDENT [None]
